FAERS Safety Report 15732574 (Version 2)
Quarter: 2019Q3

REPORT INFORMATION
  Report Type: Spontaneous
  Country: US (occurrence: US)
  Receive Date: 20181217
  Receipt Date: 20190715
  Transmission Date: 20191004
  Serious: No
  Sender: FDA-Public Use
  Company Number: US-NOVOPROD-637020

PATIENT
  Age: 46 Year
  Sex: Female

DRUGS (2)
  1. OZEMPIC [Suspect]
     Active Substance: SEMAGLUTIDE
     Indication: WEIGHT DECREASED
  2. OZEMPIC [Suspect]
     Active Substance: SEMAGLUTIDE
     Indication: GLUCOSE TOLERANCE IMPAIRED
     Dosage: 1 MG, UNK
     Route: 058
     Dates: start: 201808

REACTIONS (7)
  - Device failure [Not Recovered/Not Resolved]
  - Product use in unapproved indication [Not Recovered/Not Resolved]
  - Nausea [Recovered/Resolved]
  - Weight decreased [Unknown]
  - Injection site pain [Not Recovered/Not Resolved]
  - Constipation [Not Recovered/Not Resolved]
  - Headache [Unknown]

NARRATIVE: CASE EVENT DATE: 2018
